FAERS Safety Report 7641727-8 (Version None)
Quarter: 2011Q3

REPORT INFORMATION
  Report Type: 
  Country: None (occurrence: None)
  Receive Date: 20110727
  Receipt Date: 20110727
  Transmission Date: 20111222
  Serious: Yes (Hospitalization)
  Sender: FDA-Public Use
  Company Number: None

PATIENT
  Sex: Male
  Weight: 64 kg

DRUGS (2)
  1. PACLITAXEL [Suspect]
     Dosage: 452 MG
     Dates: end: 20110706
  2. CARBOPLATIN [Suspect]
     Dosage: 1304 MG
     Dates: end: 20110706

REACTIONS (6)
  - WEIGHT DECREASED [None]
  - BLOOD PRESSURE IMMEASURABLE [None]
  - HEART RATE DECREASED [None]
  - OROPHARYNGEAL PAIN [None]
  - DYSGEUSIA [None]
  - HEART RATE INCREASED [None]
